FAERS Safety Report 20845036 (Version 1)
Quarter: 2022Q2

REPORT INFORMATION
  Report Type: Spontaneous
  Country: US (occurrence: None)
  Receive Date: 20220517
  Receipt Date: 20220517
  Transmission Date: 20220721
  Serious: Yes (Other)
  Sender: FDA-Public Use
  Company Number: None

PATIENT
  Age: 66 Year
  Sex: Male

DRUGS (1)
  1. PAXLOVID [Suspect]
     Active Substance: NIRMATRELVIR\RITONAVIR
     Indication: COVID-19
     Dosage: FREQUENCY : TWICE A DAY;?
     Route: 048
     Dates: start: 20220503, end: 20220508

REACTIONS (5)
  - SARS-CoV-2 test negative [None]
  - Cough [None]
  - SARS-CoV-2 test positive [None]
  - Nasal congestion [None]
  - Hypersensitivity [None]

NARRATIVE: CASE EVENT DATE: 20220514
